FAERS Safety Report 11634332 (Version 1)
Quarter: 2015Q4

REPORT INFORMATION
  Report Type: Report from Study
  Country: BR (occurrence: BR)
  Receive Date: 20151015
  Receipt Date: 20151015
  Transmission Date: 20160304
  Serious: Yes (Hospitalization, Other)
  Sender: FDA-Public Use
  Company Number: PHHY2015BR124776

PATIENT
  Sex: Male

DRUGS (1)
  1. EXJADE [Suspect]
     Active Substance: DEFERASIROX
     Indication: PRODUCT USED FOR UNKNOWN INDICATION
     Dosage: 750 MG (1 500 MG AND 2 125 MG TABLETS), UNK
     Route: 065

REACTIONS (5)
  - Sickle cell anaemia with crisis [Unknown]
  - Pneumonia [Unknown]
  - Serum ferritin increased [Unknown]
  - Infection [Unknown]
  - Influenza [Unknown]
